FAERS Safety Report 8893149 (Version 1)
Quarter: 2012Q4

REPORT INFORMATION
  Report Type: 
  Country: US (occurrence: US)
  Receive Date: 20121107
  Receipt Date: 20121107
  Transmission Date: 20130627
  Serious: No
  Sender: FDA-Public Use
  Company Number: US-AMGEN-USASP2011052307

PATIENT
  Age: 62 Year
  Sex: Female

DRUGS (12)
  1. ENBREL [Suspect]
     Indication: PRODUCT USED FOR UNKNOWN INDICATION
     Dosage: 50 mg, qwk
     Route: 058
  2. CYMBALTA [Concomitant]
     Dosage: 20 mg, UNK
     Route: 048
  3. BONIVA [Concomitant]
     Dosage: 150 mg, UNK
     Route: 048
  4. PREDNISONE [Concomitant]
     Dosage: 1 mg, UNK
     Route: 048
  5. LYRICA [Concomitant]
     Dosage: 100 mg, UNK
     Route: 048
  6. HYDROXYCHLOROQUINE [Concomitant]
     Dosage: 200 mg, UNK
     Route: 048
  7. LOVAZA [Concomitant]
     Dosage: 1 UNK, UNK
     Route: 048
  8. NEXIUM                             /01479302/ [Concomitant]
     Dosage: 20 mg, UNK
     Route: 048
  9. VERAPAMIL [Concomitant]
     Dosage: 100 mg, UNK
     Route: 048
  10. SAVELLA [Concomitant]
     Dosage: 25 mg, UNK
     Route: 048
  11. VITAMIN C                          /00008001/ [Concomitant]
     Dosage: 500 mg, UNK
  12. HYDROCODONE W/APAP [Concomitant]
     Dosage: 500 mg, UNK
     Route: 048

REACTIONS (4)
  - Injection site erythema [Unknown]
  - Injection site rash [Unknown]
  - Injection site urticaria [Unknown]
  - Injection site induration [Unknown]
